FAERS Safety Report 6169193-2 (Version None)
Quarter: 2009Q2

REPORT INFORMATION
  Report Type: 
  Country: None (occurrence: None)
  Receive Date: 20090424
  Receipt Date: 20090219
  Transmission Date: 20091009
  Serious: No
  Sender: FDA-Public Use
  Company Number: ALL1-2009-00457

PATIENT
  Age: 38 Year
  Sex: Male

DRUGS (2)
  1. VYVANSE [Suspect]
     Dosage: MG, 1X/DAY QD, ORAL
     Route: 048
  2. SUBOXONE [Concomitant]

REACTIONS (1)
  - BACK DISORDER [None]
